FAERS Safety Report 4314309-3 (Version None)
Quarter: 2004Q1

REPORT INFORMATION
  Report Type: 
  Country: None (occurrence: None)
  Receive Date: 20040309
  Receipt Date: 20040309
  Transmission Date: 20041129
  Serious: Yes (Other)
  Sender: FDA-Public Use
  Company Number: None

PATIENT
  Age: 46 Year
  Sex: Female
  Weight: 644.1078 kg

DRUGS (2)
  1. DEPO-MEDROL [Suspect]
     Indication: NECK PAIN
     Dosage: SINGLE INJECTION EPIDURAL
     Route: 008
     Dates: start: 20020701, end: 20021029
  2. DEPO-MEDROL [Suspect]
     Indication: NECK PAIN
     Dosage: SINGLE INJECTION EPIDURAL
     Route: 008
     Dates: start: 20020712, end: 20031119

REACTIONS (11)
  - ABDOMINAL DISTENSION [None]
  - BLOOD PRESSURE INCREASED [None]
  - DEPRESSION [None]
  - EUPHORIC MOOD [None]
  - HEART RATE INCREASED [None]
  - HYPERHIDROSIS [None]
  - MORBID THOUGHTS [None]
  - MYCETOMA MYCOTIC [None]
  - PHOTOSENSITIVITY REACTION [None]
  - SWELLING FACE [None]
  - WEIGHT INCREASED [None]
